FAERS Safety Report 4681637-1 (Version None)
Quarter: 2005Q2

REPORT INFORMATION
  Report Type: 
  Country: None (occurrence: None)
  Receive Date: 20050602
  Receipt Date: 20050524
  Transmission Date: 20051028
  Serious: Yes (Hospitalization)
  Sender: FDA-Public Use
  Company Number: SUS1-2005-00365

PATIENT
  Age: 17 Year
  Sex: Male
  Weight: 85.3 kg

DRUGS (1)
  1. ADDERALL 10 [Suspect]
     Indication: ATTENTION DEFICIT/HYPERACTIVITY DISORDER
     Dosage: 30 MG DAILY,
     Dates: start: 20041018, end: 20041201

REACTIONS (3)
  - DRUG HYPERSENSITIVITY [None]
  - EOSINOPHIL PERCENTAGE INCREASED [None]
  - PLEURAL EFFUSION [None]
